FAERS Safety Report 19030456 (Version 5)
Quarter: 2021Q3

REPORT INFORMATION
  Report Type: Report from Study
  Country: PL (occurrence: PL)
  Receive Date: 20210319
  Receipt Date: 20210915
  Transmission Date: 20211014
  Serious: Yes (Disabling, Other)
  Sender: FDA-Public Use
  Company Number: PL-CELGENEUS-POL-20210302354

PATIENT
  Age: 46 Year
  Sex: Female

DRUGS (4)
  1. CONDOME WITH SPERMICYDE [Concomitant]
     Indication: CONTRACEPTION
     Dosage: 1 UNIT
     Route: 050
  2. OZANIMOD. [Suspect]
     Active Substance: OZANIMOD
     Indication: RELAPSING MULTIPLE SCLEROSIS
     Dosage: 1 MILLIGRAM
     Route: 048
     Dates: start: 20161026, end: 20210306
  3. NEBIVOLEK (NEBIWOLOL) [Concomitant]
     Indication: HYPERTENSION
     Dosage: 5 MILLIGRAM
     Route: 048
     Dates: start: 20200510
  4. VIBIN MINI [Concomitant]
     Indication: CONTRACEPTION
     Dosage: 1 DOSAGE FORMS
     Route: 048
     Dates: start: 20200301

REACTIONS (1)
  - Progressive multifocal leukoencephalopathy [Not Recovered/Not Resolved]

NARRATIVE: CASE EVENT DATE: 20210129
